FAERS Safety Report 4683084-5 (Version None)
Quarter: 2005Q2

REPORT INFORMATION
  Report Type: 
  Country: None (occurrence: None)
  Receive Date: 20050602
  Receipt Date: 20050214
  Transmission Date: 20051028
  Serious: No
  Sender: FDA-Public Use
  Company Number: USA050290668

PATIENT
  Age: 80 Year
  Sex: Female

DRUGS (7)
  1. CYMBALTA [Suspect]
     Dosage: 30 MG DAY
     Dates: start: 20050203
  2. SINEMET [Concomitant]
  3. AMARYL [Concomitant]
  4. COZAAR [Concomitant]
  5. HYDROCHLOROTHIAZIDE [Concomitant]
  6. VITAMINS NOS [Concomitant]
  7. GLUCOSAMINE [Concomitant]

REACTIONS (2)
  - FEELING ABNORMAL [None]
  - VOMITING [None]
